FAERS Safety Report 7955358-3 (Version None)
Quarter: 2011Q4

REPORT INFORMATION
  Report Type: 
  Country: None (occurrence: None)
  Receive Date: 20111202
  Receipt Date: 20111121
  Transmission Date: 20120403
  Serious: Yes (Hospitalization)
  Sender: FDA-Public Use
  Company Number: JP-MYLANLABS-2011S1024348

PATIENT
  Age: 62 Year
  Sex: Female
  Weight: 43 kg

DRUGS (8)
  1. STRONG NEO-MINOPHAGEN C [Concomitant]
     Indication: HEPATIC CIRRHOSIS
     Route: 042
  2. LEVOFLOXACIN [Concomitant]
     Indication: PYREXIA
     Route: 048
     Dates: start: 20111116
  3. TEPRENONE [Concomitant]
     Indication: PYREXIA
     Route: 048
     Dates: start: 20111116
  4. EPIRUBICIN [Suspect]
     Indication: HEPATIC NEOPLASM MALIGNANT
     Route: 013
     Dates: start: 20110906, end: 20110906
  5. LOXOPROFEN [Concomitant]
     Indication: PYREXIA
     Route: 048
     Dates: start: 20111116
  6. TSU-68 [Suspect]
     Indication: HEPATIC NEOPLASM MALIGNANT
     Route: 048
     Dates: start: 20110910, end: 20111116
  7. URSODIOL [Concomitant]
     Indication: HEPATIC CIRRHOSIS
     Route: 048
  8. LIVACT /01504901/ [Concomitant]
     Indication: HEPATIC CIRRHOSIS
     Route: 048
     Dates: start: 20110902

REACTIONS (1)
  - LIVER ABSCESS [None]
